FAERS Safety Report 22024904 (Version 2)
Quarter: 2023Q1

REPORT INFORMATION
  Report Type: Spontaneous
  Country: IT (occurrence: IT)
  Receive Date: 20230223
  Receipt Date: 20230309
  Transmission Date: 20230418
  Serious: Yes (Other)
  Sender: FDA-Public Use
  Company Number: IT-SA-SAC20230222000818

PATIENT
  Age: 44 Year
  Sex: Male

DRUGS (1)
  1. DUPIXENT [Suspect]
     Active Substance: DUPILUMAB
     Indication: Chronic rhinosinusitis with nasal polyps
     Dosage: 300 MG, QOW
     Route: 058
     Dates: start: 202106

REACTIONS (1)
  - Neuropathy peripheral [Unknown]

NARRATIVE: CASE EVENT DATE: 20220701
